FAERS Safety Report 21825765 (Version 1)
Quarter: 2023Q1

REPORT INFORMATION
  Report Type: Spontaneous
  Country: US (occurrence: US)
  Receive Date: 20230105
  Receipt Date: 20230105
  Transmission Date: 20230418
  Serious: No
  Sender: FDA-Public Use
  Company Number: US-drreddys-SPO/USA/22/0158559

PATIENT
  Age: 72 Year
  Sex: Male

DRUGS (13)
  1. LENALIDOMIDE [Suspect]
     Active Substance: LENALIDOMIDE
     Indication: Plasma cell myeloma in remission
     Dosage: TAKE 1 CAPSULE BY MOUTH DAILY
     Route: 048
  2. BENZONATATE CAP 200MG [Concomitant]
     Indication: Product used for unknown indication
  3. DOXYCYCLINE TAB 100MG [Concomitant]
     Indication: Product used for unknown indication
  4. B12 SUB 5000MCG [Concomitant]
     Indication: Product used for unknown indication
  5. AMLODIPINE B TAB 10MG [Concomitant]
     Indication: Product used for unknown indication
  6. ASPIRIN TBE 81MG [Concomitant]
     Indication: Product used for unknown indication
  7. CALCIUM 600 TAB 600-200M [Concomitant]
     Indication: Product used for unknown indication
     Dosage: 600-200M
  8. DIPHENOXYLAT TAB 2.5-0.02 [Concomitant]
     Indication: Product used for unknown indication
     Dosage: 2.5-0.02
  9. DULOXETINE H CPE 30MG [Concomitant]
     Indication: Product used for unknown indication
  10. GABAPENTIN CAP 400MG [Concomitant]
     Indication: Product used for unknown indication
  11. KRILL OIL OM CAP 500MG [Concomitant]
     Indication: Product used for unknown indication
  12. LOSARTAN POT TAB 100MG [Concomitant]
     Indication: Product used for unknown indication
     Dosage: 100MG,M MG/1.7ML
  13. M MG/1.7ML [Concomitant]
     Indication: Product used for unknown indication

REACTIONS (2)
  - Nasopharyngitis [Not Recovered/Not Resolved]
  - Cough [Not Recovered/Not Resolved]
